FAERS Safety Report 11550208 (Version 1)
Quarter: 2015Q3

REPORT INFORMATION
  Report Type: Spontaneous
  Country: US (occurrence: US)
  Receive Date: 20150924
  Receipt Date: 20150924
  Transmission Date: 20151125
  Serious: Yes (Hospitalization)
  Sender: FDA-Public Use
  Company Number: US-ACTELION-A-NJ2015-124336

PATIENT
  Age: 87 Year
  Sex: Female

DRUGS (10)
  1. GABAPENTIN. [Concomitant]
     Active Substance: GABAPENTIN
  2. MAGNESIUM [Concomitant]
     Active Substance: MAGNESIUM
  3. ZYRTEC [Concomitant]
     Active Substance: CETIRIZINE HYDROCHLORIDE
  4. OPSUMIT [Suspect]
     Active Substance: MACITENTAN
     Indication: PULMONARY ARTERIAL HYPERTENSION
     Dosage: 10 MG, UNK
     Route: 048
     Dates: start: 20140508
  5. BACLOFEN. [Concomitant]
     Active Substance: BACLOFEN
  6. FOLIC ACID. [Concomitant]
     Active Substance: FOLIC ACID
  7. BETAPACE [Concomitant]
     Active Substance: SOTALOL HYDROCHLORIDE
  8. PRADAXA [Concomitant]
     Active Substance: DABIGATRAN ETEXILATE MESYLATE
  9. LOPRESSOR [Concomitant]
     Active Substance: METOPROLOL TARTRATE
  10. LASIX [Concomitant]
     Active Substance: FUROSEMIDE

REACTIONS (1)
  - Fluid retention [Unknown]

NARRATIVE: CASE EVENT DATE: 20150902
